FAERS Safety Report 8178102 (Version 3)
Quarter: 2013Q2

REPORT INFORMATION
  Report Type: Spontaneous
  Country: CN (occurrence: CN)
  Receive Date: 20111012
  Receipt Date: 20130514
  Transmission Date: 20140414
  Serious: Yes (Other)
  Sender: FDA-Public Use
  Company Number: CN-ABBOTT-11P-035-0861904-00

PATIENT
  Age: 62 Year
  Sex: Male

DRUGS (2)
  1. DEPAKINE [Suspect]
     Indication: EPILEPSY
     Dosage: 750 MILLIGRAM(S); DAILY
     Route: 048
     Dates: start: 20050701
  2. GINKGO BILOBA [Concomitant]
     Indication: PRODUCT USED FOR UNKNOWN INDICATION
     Dates: start: 201104, end: 201108

REACTIONS (3)
  - Loss of consciousness [Recovering/Resolving]
  - Epilepsy [Recovering/Resolving]
  - Convulsion [Recovering/Resolving]
